FAERS Safety Report 24325705 (Version 5)
Quarter: 2025Q1

REPORT INFORMATION
  Report Type: Spontaneous
  Country: CA (occurrence: CA)
  Receive Date: 20240917
  Receipt Date: 20250109
  Transmission Date: 20250409
  Serious: Yes (Other)
  Sender: CELLTRION
  Company Number: CA-PFIZER INC-202400105225

PATIENT

DRUGS (9)
  1. INFLECTRA [Suspect]
     Active Substance: INFLIXIMAB-DYYB
     Indication: Ankylosing spondylitis
     Route: 042
     Dates: start: 20240311
  2. INFLECTRA [Suspect]
     Active Substance: INFLIXIMAB-DYYB
     Route: 042
     Dates: start: 20240509
  3. INFLECTRA [Suspect]
     Active Substance: INFLIXIMAB-DYYB
     Route: 042
     Dates: start: 20240906
  4. INFLECTRA [Suspect]
     Active Substance: INFLIXIMAB-DYYB
     Route: 042
     Dates: start: 20241105
  5. ATIVAN [Concomitant]
     Active Substance: LORAZEPAM
  6. BENADRYL [Concomitant]
     Active Substance: DIPHENHYDRAMINE HYDROCHLORIDE
     Indication: Premedication
  7. PREGABALIN [Concomitant]
     Active Substance: PREGABALIN
  8. TYLENOL [Concomitant]
     Active Substance: ACETAMINOPHEN
  9. WELLBUTRIN [Concomitant]
     Active Substance: BUPROPION HYDROCHLORIDE

REACTIONS (17)
  - Arrhythmia [Unknown]
  - Corneal transplant [Recovered/Resolved]
  - Blood pressure increased [Unknown]
  - Palpitations [Unknown]
  - Blood pressure decreased [Not Recovered/Not Resolved]
  - Fatigue [Recovered/Resolved]
  - Dizziness [Unknown]
  - Pain in extremity [Recovering/Resolving]
  - Back pain [Recovering/Resolving]
  - Abdominal pain [Unknown]
  - Dysuria [Unknown]
  - Limb discomfort [Unknown]
  - Pain [Recovering/Resolving]
  - Tension headache [Unknown]
  - Pollakiuria [Unknown]
  - Inappropriate schedule of product administration [Unknown]
  - Off label use [Unknown]

NARRATIVE: CASE EVENT DATE: 20240101
